FAERS Safety Report 15720089 (Version 3)
Quarter: 2019Q1

REPORT INFORMATION
  Report Type: Spontaneous
  Country: DK (occurrence: DK)
  Receive Date: 20181213
  Receipt Date: 20190326
  Transmission Date: 20190417
  Serious: Yes (Hospitalization)
  Sender: FDA-Public Use
  Company Number: DK-MYLANLABS-2018M1091930

PATIENT
  Age: 23 Year
  Sex: Female
  Weight: 63 kg

DRUGS (4)
  1. NEFOXEF [Concomitant]
     Indication: PRODUCT USED FOR UNKNOWN INDICATION
     Dosage: 180 MILLIGRAM, PRN
  2. EPIPEN [Suspect]
     Active Substance: EPINEPHRINE
     Indication: DYSPNOEA
     Dosage: IN THE EVENING, ONCE
     Route: 030
     Dates: start: 20181117, end: 20181117
  3. MINULET [Concomitant]
     Active Substance: ETHINYL ESTRADIOL\GESTODENE
     Indication: PRODUCT USED FOR UNKNOWN INDICATION
     Dosage: 1 UNK, QD
  4. EPIPEN [Suspect]
     Active Substance: EPINEPHRINE
     Indication: PAIN

REACTIONS (3)
  - Product use in unapproved indication [Unknown]
  - Injection site haematoma [Unknown]
  - Drug ineffective [Recovered/Resolved]

NARRATIVE: CASE EVENT DATE: 20181117
